FAERS Safety Report 20745869 (Version 1)
Quarter: 2022Q2

REPORT INFORMATION
  Report Type: Spontaneous
  Country: US (occurrence: None)
  Receive Date: 20220423
  Receipt Date: 20220423
  Transmission Date: 20220721
  Serious: Yes (unspecified)
  Sender: FDA-Public Use
  Company Number: None

PATIENT
  Age: 52 Year
  Sex: Female
  Weight: 81 kg

DRUGS (10)
  1. LAMOTRIGINE [Suspect]
     Active Substance: LAMOTRIGINE
     Indication: Epilepsy
  2. HALDOL [Concomitant]
     Active Substance: HALOPERIDOL
  3. LORAZEPAM [Concomitant]
     Active Substance: LORAZEPAM
  4. SYNTHROID [Concomitant]
     Active Substance: LEVOTHYROXINE SODIUM
  5. METOPROLOL [Concomitant]
     Active Substance: METOPROLOL
  6. VITAMIN B12 [Concomitant]
     Active Substance: CYANOCOBALAMIN
  7. PYRIDOXINE HYDROCHLORIDE [Concomitant]
     Active Substance: PYRIDOXINE HYDROCHLORIDE
  8. FOLIC ACID [Concomitant]
     Active Substance: FOLIC ACID
  9. MAGNESIUM [Concomitant]
     Active Substance: MAGNESIUM
  10. VITAMIN D NOS [Concomitant]
     Active Substance: VITAMIN D NOS

REACTIONS (1)
  - Heart rate increased [None]

NARRATIVE: CASE EVENT DATE: 20220423
